FAERS Safety Report 12802482 (Version 2)
Quarter: 2016Q4

REPORT INFORMATION
  Report Type: Spontaneous
  Country: DK (occurrence: DK)
  Receive Date: 20161003
  Receipt Date: 20161107
  Transmission Date: 20170207
  Serious: Yes (Other)
  Sender: FDA-Public Use
  Company Number: DK-TEVA-695072ACC

PATIENT
  Age: 47 Year
  Sex: Male
  Weight: 89 kg

DRUGS (1)
  1. ATORVASTATIN ^TEVA^ [Suspect]
     Active Substance: ATORVASTATIN
     Indication: HYPERCHOLESTEROLAEMIA
     Dosage: 40 MILLIGRAM DAILY; STRENGTH: 40 MG.
     Route: 048
     Dates: start: 20160608, end: 20160915

REACTIONS (3)
  - Hot flush [Recovered/Resolved]
  - Fatigue [Recovered/Resolved]
  - Suicidal ideation [Recovered/Resolved]

NARRATIVE: CASE EVENT DATE: 20160701
